FAERS Safety Report 23059730 (Version 1)
Quarter: 2023Q4

REPORT INFORMATION
  Report Type: Spontaneous
  Country: FR (occurrence: FR)
  Receive Date: 20231012
  Receipt Date: 20231012
  Transmission Date: 20240109
  Serious: Yes (Hospitalization)
  Sender: FDA-Public Use
  Company Number: None

PATIENT
  Age: 62 Year
  Sex: Female
  Weight: 65 kg

DRUGS (6)
  1. PREDNISONE [Suspect]
     Active Substance: PREDNISONE
     Indication: Immune-mediated pericarditis
     Dosage: 70 MG, QD,THEN GRADUAL DECREASE
     Route: 048
     Dates: start: 20230616, end: 20230725
  2. METHYLPREDNISOLONE [Suspect]
     Active Substance: METHYLPREDNISOLONE
     Indication: Immune-mediated pericarditis
     Dosage: 880MG,1TOTAL D1 TO D5:120MG/D THEN D6-D9:70MG/D
     Route: 042
     Dates: start: 20230607, end: 20230615
  3. YERVOY [Suspect]
     Active Substance: IPILIMUMAB
     Indication: Malignant melanoma
     Dosage: 200 MILLIGRAM, MONTHLY (800MG TOTAL)
     Route: 042
     Dates: start: 20230307, end: 20230509
  4. OPDIVO [Suspect]
     Active Substance: NIVOLUMAB
     Indication: Malignant melanoma
     Dosage: 335 MILLIGRAM, 1TOTAL, 67 MG/4 WEEKS
     Route: 042
     Dates: start: 20230307, end: 20230725
  5. PREGABALIN [Concomitant]
     Active Substance: PREGABALIN
     Dosage: UNK
     Route: 065
  6. TARKA [Concomitant]
     Active Substance: TRANDOLAPRIL\VERAPAMIL HYDROCHLORIDE
     Dosage: UNK
     Route: 065

REACTIONS (1)
  - Duodenitis [Recovering/Resolving]

NARRATIVE: CASE EVENT DATE: 20230805
